FAERS Safety Report 9252552 (Version 1)
Quarter: 2013Q1

REPORT INFORMATION
  Report Type: Spontaneous
  Country: US (occurrence: None)
  Receive Date: 20130305
  Receipt Date: 20130305
  Transmission Date: 20140127
  Serious: Yes (Other)
  Sender: FDA-Public Use
  Company Number: 163-21880-12090673

PATIENT
  Age: 74 Year
  Sex: Female
  Weight: 89 kg

DRUGS (16)
  1. REVLIMID ( LENALIDOMIDE) (5 MILLIGRAM, CAPSULES) [Suspect]
     Indication: PLASMA CELL MYELOMA
     Dosage: 5 MG, 1 IN 1 D, PO
     Route: 048
     Dates: start: 20120831, end: 20120904
  2. FENTANYL (FENTANYL) (UNKNOWN) (FENTANYL) [Concomitant]
     Dosage: 25 UG, 1 IN 24 HR, TD
  3. HYDROCODONE/ACETAMINOPHEN (REMEDEINE) (UNKNOWN) [Concomitant]
     Dosage: 5/500, ONE-TWO EVERY 6HRS AS NEEDED, PO
     Route: 048
  4. FOLIC ACID (FOLIC ACID) (UNKNOWN) [Concomitant]
     Dosage: 400 MG, 1 IN 1 D, PO
     Route: 048
  5. AMLODIPINE (AMLODIPINE) (10 MILLIGRAM, UNKNOWN) [Concomitant]
     Dosage: 10 MG, 1 IN 1 D, PO
     Route: 048
  6. VITAMIN D (ERGOCALCIFEROL) (UNKNOWN) [Concomitant]
     Dosage: 2000 INT UNIT, DAILY, PO
     Route: 048
  7. MULTIVITAMINS (MULTIVITAMINS) (UNKNOWN) [Concomitant]
     Dosage: 1 TAB, 1 IN 1 D, PO
     Route: 048
  8. ALLOPURINOL (ALLOPURINOL) (UNKNOWN) [Concomitant]
     Dosage: 300 MG, 1 IN 1 D, PO
     Route: 048
  9. LEVOTHYROXINE (LEVOTHYROXINE) (UNKNOWN) [Concomitant]
     Dosage: 137 UG, 1 IN 1 D, PO
     Route: 048
  10. LATANOPROST (LATANOPROST) (OPHTHALMIC) [Concomitant]
     Dosage: 2.5 %, EVERY DAY BEFORE SLEEP, UNK
  11. ONDANSETRON (ONDANSETRON) (UNKNOWN) [Concomitant]
     Dosage: 24 MG, 1 IN 8 HR, PO
     Route: 048
  12. ZOLPIDEM (ZOLPIDEM) (UNKNOWN) (ZOLPIDEM) [Concomitant]
     Dosage: 10 MG, 1 IN 1 D, PO
     Route: 048
  13. GABAPENTIN (GABAPENTIN) (UNKNOWN) (GABAPENTIN) [Concomitant]
     Dosage: 100 MG, 2 TABS AT HS, PO
     Route: 048
  14. FISH OIL (FISH OIL) (UNKNOWN) [Concomitant]
     Dosage: 1200 MG, 1 IN 1 D, PO
     Route: 048
  15. MICONAZOLE (MICONAZOLE) (UNKNOWN) [Concomitant]
     Dosage: AS NEEDED, TOP
     Route: 061
  16. PROCHLORPERAZINE (PROCHLORPERAZINE) (UNKNOWN) [Concomitant]
     Dosage: 40 MG, 1 IN 6 HR, PO
     Route: 048

REACTIONS (2)
  - Pruritus [None]
  - Rash [None]
